FAERS Safety Report 9257703 (Version 1)
Quarter: 2013Q2

REPORT INFORMATION
  Report Type: Spontaneous
  Country: CN (occurrence: CN)
  Receive Date: 20130426
  Receipt Date: 20130426
  Transmission Date: 20140414
  Serious: Yes (Death)
  Sender: FDA-Public Use
  Company Number: CN-ASTELLAS-2013JP005322

PATIENT
  Age: 16 Year
  Sex: 0
  Weight: 60 kg

DRUGS (2)
  1. PROGRAF [Suspect]
     Indication: NEPHROTIC SYNDROME
     Dosage: 3 MG, BID
     Route: 048
     Dates: start: 20130416, end: 20130420
  2. CORTICOSTEROID NOS [Concomitant]
     Indication: NEPHROTIC SYNDROME
     Dosage: UNK
     Route: 048

REACTIONS (2)
  - Death [Fatal]
  - Hypotension [Fatal]
